FAERS Safety Report 16224364 (Version 1)
Quarter: 2019Q2

REPORT INFORMATION
  Report Type: Report from Study
  Country: CA (occurrence: CA)
  Receive Date: 20190422
  Receipt Date: 20190422
  Transmission Date: 20190711
  Serious: Yes (Other)
  Sender: FDA-Public Use
  Company Number: CA-JNJFOC-20190403720

PATIENT
  Age: 71 Year
  Sex: Female
  Weight: 58.2 kg

DRUGS (1)
  1. STELARA [Suspect]
     Active Substance: USTEKINUMAB
     Indication: CROHN^S DISEASE
     Route: 058
     Dates: start: 20180425

REACTIONS (10)
  - Hot flush [Unknown]
  - Clostridium difficile infection [Unknown]
  - Stress [Unknown]
  - Therapeutic product effect decreased [Unknown]
  - Nasopharyngitis [Unknown]
  - Headache [Unknown]
  - Pain in extremity [Unknown]
  - Fatigue [Unknown]
  - Eye pain [Unknown]
  - Agitation [Unknown]

NARRATIVE: CASE EVENT DATE: 20190325
